FAERS Safety Report 18611143 (Version 1)
Quarter: 2020Q4

REPORT INFORMATION
  Report Type: Spontaneous
  Country: US (occurrence: US)
  Receive Date: 20201211
  Receipt Date: 20201211
  Transmission Date: 20210114
  Serious: Yes (Death)
  Sender: FDA-Public Use
  Company Number: None

PATIENT
  Age: 75 Year
  Sex: Female

DRUGS (1)
  1. REVLIMID [Suspect]
     Active Substance: LENALIDOMIDE
     Indication: PLASMA CELL MYELOMA
     Dosage: OTHER FREQUENCY:QD K21/28D ;?
     Route: 048
     Dates: start: 20171120

REACTIONS (3)
  - Somnolence [None]
  - Hospice care [None]
  - Disease progression [None]

NARRATIVE: CASE EVENT DATE: 20200310
